FAERS Safety Report 5665339-0 (Version None)
Quarter: 2008Q1

REPORT INFORMATION
  Report Type: 
  Country: None (occurrence: None)
  Receive Date: 20080314
  Receipt Date: 20071205
  Transmission Date: 20080703
  Serious: No
  Sender: FDA-Public Use
  Company Number: US-ABBOTT-07P-163-0426845-00

PATIENT
  Sex: Male
  Weight: 90.8 kg

DRUGS (6)
  1. HUMIRA [Suspect]
     Indication: CROHN'S DISEASE
     Route: 058
     Dates: start: 20060901
  2. AZATHIOPRINE [Concomitant]
     Indication: CROHN'S DISEASE
     Route: 048
  3. ESOMEPRAZOLE MAGNESIUM [Concomitant]
     Indication: GASTRIC PH DECREASED
     Route: 048
     Dates: start: 20040101
  4. ACACOL [Concomitant]
     Indication: CROHN'S DISEASE
     Route: 048
     Dates: start: 20050101
  5. DUET STUARTNATAL TABLETS [Concomitant]
     Indication: VITAMIN SUPPLEMENTATION
     Route: 048
     Dates: start: 20060901
  6. DUET STUARTNATAL TABLETS [Concomitant]
     Indication: CROHN'S DISEASE

REACTIONS (4)
  - BLOOD ALBUMIN INCREASED [None]
  - BLOOD BILIRUBIN INCREASED [None]
  - BLOOD CALCIUM INCREASED [None]
  - WEIGHT INCREASED [None]
